FAERS Safety Report 23830237 (Version 1)
Quarter: 2024Q2

REPORT INFORMATION
  Report Type: Spontaneous
  Country: NO (occurrence: NO)
  Receive Date: 20240508
  Receipt Date: 20240508
  Transmission Date: 20240716
  Serious: Yes (Other)
  Sender: FDA-Public Use
  Company Number: None

PATIENT

DRUGS (1)
  1. LAMICTAL [Suspect]
     Active Substance: LAMOTRIGINE
     Indication: Bipolar disorder
     Dosage: UNK (300)
     Route: 048
     Dates: start: 20240408, end: 20240426

REACTIONS (6)
  - Suicidal ideation [Unknown]
  - Fatigue [Unknown]
  - Headache [Unknown]
  - Joint stiffness [Unknown]
  - Pain [Recovered/Resolved]
  - Diarrhoea [Unknown]

NARRATIVE: CASE EVENT DATE: 20240422
